FAERS Safety Report 6272228-X (Version None)
Quarter: 2009Q3

REPORT INFORMATION
  Report Type: 
  Country: None (occurrence: None)
  Receive Date: 20090717
  Receipt Date: 20090717
  Transmission Date: 20100115
  Serious: Yes (Life-Threatening)
  Sender: FDA-Public Use
  Company Number: IT-JNJFOC-20090705621

PATIENT
  Sex: Male

DRUGS (1)
  1. LEVOXACIN [Suspect]
     Indication: DRUG USE FOR UNKNOWN INDICATION
     Route: 065

REACTIONS (3)
  - GLOMERULAR VASCULAR DISORDER [None]
  - RENAL FAILURE ACUTE [None]
  - RENAL VASCULITIS [None]
